FAERS Safety Report 9439004 (Version 1)
Quarter: 2013Q3

REPORT INFORMATION
  Report Type: Report from Study
  Country: BR (occurrence: BR)
  Receive Date: 20130802
  Receipt Date: 20130802
  Transmission Date: 20140515
  Serious: Yes (Hospitalization)
  Sender: FDA-Public Use
  Company Number: BR-PFIZER INC-2010035720

PATIENT
  Age: 56 Year
  Sex: Female
  Weight: 70 kg

DRUGS (24)
  1. BLINDED CELECOXIB [Suspect]
     Indication: RHEUMATOID ARTHRITIS
     Dosage: LOW DOSE, 3X/DAY
     Route: 048
     Dates: start: 20090529
  2. BLINDED IBUPROFEN [Suspect]
     Indication: RHEUMATOID ARTHRITIS
     Dosage: LOW DOSE, 3X/DAY
     Route: 048
     Dates: start: 20090529
  3. BLINDED IBUPROFEN [Suspect]
     Indication: RHEUMATOID ARTHRITIS
     Dosage: LOW DOSE, 3X/DAY
     Route: 048
     Dates: start: 20090529
  4. BLINDED IBUPROFEN [Suspect]
     Indication: RHEUMATOID ARTHRITIS
     Dosage: LOW DOSE, 3X/DAY
     Route: 048
     Dates: start: 20090529
  5. BLINDED NAPROXEN [Suspect]
     Indication: RHEUMATOID ARTHRITIS
     Dosage: LOW DOSE, 3X/DAY
     Route: 048
     Dates: start: 20090529
  6. BLINDED NAPROXEN [Suspect]
     Indication: RHEUMATOID ARTHRITIS
     Dosage: LOW DOSE, 3X/DAY
     Route: 048
     Dates: start: 20090529
  7. BLINDED NAPROXEN [Suspect]
     Indication: RHEUMATOID ARTHRITIS
     Dosage: LOW DOSE, 3X/DAY
     Route: 048
     Dates: start: 20090529
  8. BLINDED PLACEBO [Suspect]
     Indication: RHEUMATOID ARTHRITIS
     Dosage: LOW DOSE, 3X/DAY
     Route: 048
     Dates: start: 20090529
  9. BLINDED CELECOXIB [Suspect]
     Indication: OSTEOARTHRITIS
  10. BLINDED IBUPROFEN [Suspect]
     Indication: OSTEOARTHRITIS
  11. BLINDED IBUPROFEN [Suspect]
     Indication: OSTEOARTHRITIS
  12. BLINDED IBUPROFEN [Suspect]
     Indication: OSTEOARTHRITIS
  13. BLINDED NAPROXEN [Suspect]
     Indication: OSTEOARTHRITIS
  14. BLINDED NAPROXEN [Suspect]
     Indication: OSTEOARTHRITIS
  15. BLINDED NAPROXEN [Suspect]
     Indication: OSTEOARTHRITIS
  16. BLINDED PLACEBO [Suspect]
     Indication: OSTEOARTHRITIS
  17. NEXIUM [Suspect]
     Indication: PROPHYLAXIS
     Dosage: 40 MG, DAILY
     Route: 048
     Dates: start: 20090529
  18. TRYPTANOL [Concomitant]
     Indication: DYSTHYMIC DISORDER
     Dosage: 25 MG, 4X/DAY
     Route: 048
     Dates: start: 2006
  19. TEGRETOL [Concomitant]
     Indication: DYSTHYMIC DISORDER
     Dosage: 200 MG, 2X/DAY
     Route: 048
     Dates: start: 2006
  20. AAS [Concomitant]
     Indication: CARDIOVASCULAR EVENT PROPHYLAXIS
     Dosage: 100 MG, 1X/DAY
     Route: 048
     Dates: start: 2006
  21. CAPOTEN [Concomitant]
     Indication: HYPERTENSION
     Dosage: 25 MG, 3X/DAY
     Route: 048
     Dates: start: 2006, end: 20100204
  22. CAPOTEN [Concomitant]
     Dosage: 25 MG, 6 TIMES A DAY
     Route: 048
     Dates: start: 20100205
  23. CLORANA [Concomitant]
     Indication: HYPERTENSION
     Dosage: 25 MG, 1X/DAY
     Route: 048
     Dates: start: 2006
  24. CHLORPROMAZINE [Concomitant]
     Indication: DYSTHYMIC DISORDER
     Dosage: 50 MG, 1X/DAY
     Route: 048
     Dates: start: 20091203

REACTIONS (1)
  - Hypertensive crisis [Recovered/Resolved]
